FAERS Safety Report 6558440-0 (Version None)
Quarter: 2010Q1

REPORT INFORMATION
  Report Type: 
  Country: None (occurrence: None)
  Receive Date: 20100129
  Receipt Date: 20100120
  Transmission Date: 20100710
  Serious: Yes (Hospitalization, Other)
  Sender: FDA-Public Use
  Company Number: US-ABBOTT-10P-163-0620477-00

PATIENT
  Sex: Male
  Weight: 97.61 kg

DRUGS (14)
  1. NIASPAN [Suspect]
     Indication: BLOOD TRIGLYCERIDES INCREASED
     Route: 048
  2. NIASPAN [Suspect]
     Indication: HIGH DENSITY LIPOPROTEIN DECREASED
     Route: 048
  3. NIASPAN [Suspect]
     Route: 048
  4. NIASPAN [Suspect]
     Route: 048
     Dates: end: 20091123
  5. NIASPAN [Suspect]
     Route: 048
     Dates: start: 20091223
  6. TOPROL-XL [Suspect]
     Indication: PALPITATIONS
     Route: 048
  7. TOPROL-XL [Suspect]
     Route: 048
  8. ASPIRIN [Concomitant]
     Indication: DRUG USE FOR UNKNOWN INDICATION
     Dosage: STOPPED PRIOR TO SURGERY.
     Route: 048
  9. ASPIRIN [Concomitant]
     Dosage: MEDICATION WAS STOPPED FOR 2 MONTHS, AND RESTARTED AFTER SURGERY.
     Route: 048
  10. COZAAR [Concomitant]
     Indication: HYPERTENSION
  11. PRILOSEC [Concomitant]
     Indication: GASTROOESOPHAGEAL REFLUX DISEASE
     Route: 048
  12. FOLIC ACID [Concomitant]
     Indication: DRUG USE FOR UNKNOWN INDICATION
     Route: 048
  13. METANX [Concomitant]
     Indication: DRUG USE FOR UNKNOWN INDICATION
     Route: 048
  14. KLONOPIN [Concomitant]
     Indication: ANXIETY

REACTIONS (7)
  - DYSURIA [None]
  - FLUSHING [None]
  - OLIGURIA [None]
  - PROSTATIC DISORDER [None]
  - PRURITUS [None]
  - RASH [None]
  - URTICARIA [None]
